FAERS Safety Report 8026561-1 (Version None)
Quarter: 2012Q1

REPORT INFORMATION
  Report Type: 
  Country: None (occurrence: None)
  Receive Date: 20120106
  Receipt Date: 20111228
  Transmission Date: 20120608
  Serious: Yes (Death)
  Sender: FDA-Public Use
  Company Number: CH-BIOGENIDEC-2011BI035474

PATIENT
  Age: 68 Year
  Sex: Male

DRUGS (4)
  1. TYSABRI [Suspect]
     Indication: MULTIPLE SCLEROSIS
     Route: 042
  2. MIRTAZAPINE [Concomitant]
  3. VENLAFAXIN (VENLAFAXINUM UT VENLAFAXINI HYDROCHLORIDUM) [Concomitant]
     Indication: DEPRESSION
  4. MIANSERIN (MIANSERINI HYDROCHLORIDUM) [Concomitant]
     Indication: DEPRESSION

REACTIONS (4)
  - ANTIDEPRESSANT DRUG LEVEL DECREASED [None]
  - DIABETES MELLITUS [None]
  - OSTEOARTHRITIS [None]
  - CARDIAC DISORDER [None]
